FAERS Safety Report 12245052 (Version 4)
Quarter: 2016Q3

REPORT INFORMATION
  Report Type: Spontaneous
  Country: US (occurrence: US)
  Receive Date: 20160407
  Receipt Date: 20160912
  Transmission Date: 20161109
  Serious: Yes (Other)
  Sender: FDA-Public Use
  Company Number: US-TEVA-625889USA

PATIENT
  Age: 60 Year
  Sex: Female

DRUGS (14)
  1. VITAMIN D3 [Concomitant]
     Active Substance: CHOLECALCIFEROL
  2. NORCO [Concomitant]
     Active Substance: ACETAMINOPHEN\HYDROCODONE BITARTRATE
     Dosage: 7.5
  3. LATANOPROST. [Concomitant]
     Active Substance: LATANOPROST
     Dosage: 0.005%
  4. PRESERVISION [Concomitant]
     Active Substance: MINERALS\VITAMINS
  5. MORPHINE ER [Concomitant]
     Active Substance: MORPHINE
  6. B6 [Concomitant]
     Active Substance: PYRIDOXINE HYDROCHLORIDE
  7. CRANBERRY. [Concomitant]
     Active Substance: CRANBERRY
  8. BIOTIN [Concomitant]
     Active Substance: BIOTIN
  9. VITAMIN B12 [Concomitant]
     Active Substance: CYANOCOBALAMIN
  10. VITAMINS NOS [Concomitant]
     Active Substance: VITAMINS
  11. ZECUITY [Suspect]
     Active Substance: SUMATRIPTAN SUCCINATE
     Indication: HEADACHE
     Route: 062
     Dates: start: 20160113, end: 20160113
  12. ESTRADIOL. [Concomitant]
     Active Substance: ESTRADIOL
  13. SULFAMETHOXAZOLE-TMP DS [Concomitant]
     Active Substance: SULFAMETHOXAZOLE\TRIMETHOPRIM
  14. MAGNESIUM [Concomitant]
     Active Substance: MAGNESIUM

REACTIONS (11)
  - Myalgia [Unknown]
  - Application site erythema [Recovered/Resolved]
  - Application site irritation [Recovered/Resolved]
  - Application site paraesthesia [Recovered/Resolved]
  - Application site burn [Recovered/Resolved]
  - Application site pain [Unknown]
  - Application site discomfort [Recovered/Resolved]
  - Product adhesion issue [Unknown]
  - Application site pain [Recovered/Resolved]
  - Application site discolouration [Recovered/Resolved]
  - Drug ineffective [Unknown]

NARRATIVE: CASE EVENT DATE: 20160113
